FAERS Safety Report 17989775 (Version 2)
Quarter: 2020Q3

REPORT INFORMATION
  Report Type: Spontaneous
  Country: US (occurrence: US)
  Receive Date: 20200707
  Receipt Date: 20200717
  Transmission Date: 20201103
  Serious: Yes (Hospitalization)
  Sender: FDA-Public Use
  Company Number: US-JNJFOC-20200638448

PATIENT
  Age: 57 Year
  Sex: Female

DRUGS (6)
  1. PROZAC [Concomitant]
     Active Substance: FLUOXETINE HYDROCHLORIDE
  2. WELLBUTRIN [Concomitant]
     Active Substance: BUPROPION HYDROCHLORIDE
  3. QUETIAPINE. [Concomitant]
     Active Substance: QUETIAPINE
  4. SPRAVATO [Suspect]
     Active Substance: ESKETAMINE
     Indication: DEPRESSION
     Dates: start: 202004
  5. CLONAZEPAM. [Concomitant]
     Active Substance: CLONAZEPAM
  6. SPRAVATO [Suspect]
     Active Substance: ESKETAMINE
     Dates: start: 20200601

REACTIONS (2)
  - Suicide attempt [Unknown]
  - Drug ineffective [Unknown]
